FAERS Safety Report 24415226 (Version 2)
Quarter: 2024Q4

REPORT INFORMATION
  Report Type: Spontaneous
  Country: US (occurrence: US)
  Receive Date: 20241009
  Receipt Date: 20241106
  Transmission Date: 20250115
  Serious: Yes (Life-Threatening, Hospitalization)
  Sender: TEVA
  Company Number: US-TEVA-VS-3250833

PATIENT
  Age: 76 Year
  Sex: Male
  Weight: 81 kg

DRUGS (6)
  1. PREDNISONE [Suspect]
     Active Substance: PREDNISONE
     Indication: Granulomatosis with polyangiitis
     Route: 065
  2. CLINDAMYCIN [Concomitant]
     Active Substance: CLINDAMYCIN
     Indication: Pneumocystis jirovecii pneumonia
     Route: 042
  3. SULFAMETHOXAZOLE\TRIMETHOPRIM [Suspect]
     Active Substance: SULFAMETHOXAZOLE\TRIMETHOPRIM
     Indication: Pneumocystis jirovecii pneumonia
     Dosage: COTRIMOXAZOLE
     Route: 048
  4. RITUXIMAB [Suspect]
     Active Substance: RITUXIMAB
     Indication: Granulomatosis with polyangiitis
     Route: 065
  5. PRIMAQUINE [Suspect]
     Active Substance: PRIMAQUINE
     Indication: Pneumocystis jirovecii pneumonia
     Route: 048
  6. ATOVAQUONE [Suspect]
     Active Substance: ATOVAQUONE
     Indication: Infection prophylaxis
     Route: 048

REACTIONS (5)
  - Pneumocystis jirovecii pneumonia [Recovered/Resolved]
  - Methaemoglobinaemia [Recovering/Resolving]
  - Acute kidney injury [Recovering/Resolving]
  - Drug ineffective [Unknown]
  - Nephropathy toxic [Recovering/Resolving]
